FAERS Safety Report 26059925 (Version 5)
Quarter: 2025Q4

REPORT INFORMATION
  Report Type: Spontaneous
  Country: CN (occurrence: CN)
  Receive Date: 20251118
  Receipt Date: 20251205
  Transmission Date: 20260117
  Serious: Yes (Life-Threatening, Hospitalization, Other)
  Sender: PFIZER
  Company Number: CN-PFIZER INC-202500224146

PATIENT
  Age: 53 Year
  Sex: Female
  Weight: 40 kg

DRUGS (4)
  1. ELREXFIO [Suspect]
     Active Substance: ELRANATAMAB-BCMM
     Indication: Plasma cell myeloma
     Dosage: UNK
     Dates: start: 20251021
  2. ELREXFIO [Suspect]
     Active Substance: ELRANATAMAB-BCMM
     Indication: Coma
     Dosage: UNK
     Dates: start: 20251024
  3. ELREXFIO [Suspect]
     Active Substance: ELRANATAMAB-BCMM
     Dosage: UNK
     Dates: start: 20251104
  4. POMALIDOMIDE [Concomitant]
     Active Substance: POMALIDOMIDE
     Dosage: UNK

REACTIONS (19)
  - Respiratory arrest [Unknown]
  - Cardiac arrest [Unknown]
  - Oxygen saturation decreased [Unknown]
  - Depressed level of consciousness [Unknown]
  - Brain oedema [Unknown]
  - Cerebral haemorrhage [Unknown]
  - Encephalitis viral [Unknown]
  - Delirium [Recovered/Resolved]
  - Hallucination [Recovered/Resolved]
  - Immune effector cell-associated neurotoxicity syndrome [Unknown]
  - Coma [Not Recovered/Not Resolved]
  - Mastoiditis [Not Recovered/Not Resolved]
  - Neurotoxicity [Recovering/Resolving]
  - Sinusitis [Not Recovered/Not Resolved]
  - Liver injury [Unknown]
  - Coagulopathy [Unknown]
  - Pyrexia [Unknown]
  - Suffocation feeling [Unknown]
  - Staphylococcal infection [Unknown]

NARRATIVE: CASE EVENT DATE: 20250101
